FAERS Safety Report 5809408-0 (Version None)
Quarter: 2008Q3

REPORT INFORMATION
  Report Type: 
  Country: None (occurrence: None)
  Receive Date: 20080714
  Receipt Date: 20080708
  Transmission Date: 20090109
  Serious: Yes (Other)
  Sender: FDA-Public Use
  Company Number: US-GENENTECH-263393

PATIENT
  Sex: Female
  Weight: 10.884 kg

DRUGS (7)
  1. RITUXIMAB [Suspect]
     Indication: SCLERITIS
     Dosage: UNK G, UNK
     Route: 042
     Dates: start: 20080313
  2. PREDNISONE TAB [Suspect]
     Indication: SCLERITIS
     Dosage: 30 MG, UNK
     Dates: start: 20080330
  3. CALCIUM [Concomitant]
     Indication: DRUG USE FOR UNKNOWN INDICATION
  4. FOLIC ACID [Concomitant]
     Indication: DRUG USE FOR UNKNOWN INDICATION
  5. LORATADINE [Concomitant]
     Indication: DRUG USE FOR UNKNOWN INDICATION
  6. METHOTREXATE [Concomitant]
     Indication: DRUG USE FOR UNKNOWN INDICATION
  7. PREDNISONE TAB [Concomitant]
     Indication: DRUG USE FOR UNKNOWN INDICATION

REACTIONS (2)
  - CARDIAC FAILURE CONGESTIVE [None]
  - CARDIOMEGALY [None]
